FAERS Safety Report 4758443-2 (Version None)
Quarter: 2005Q3

REPORT INFORMATION
  Report Type: 
  Country: None (occurrence: None)
  Receive Date: 20050901
  Receipt Date: 20050621
  Transmission Date: 20060218
  Serious: Yes (Hospitalization)
  Sender: FDA-Public Use
  Company Number: NZ-BOEHRINGER INGELHEIM PHARMACEUTICALS, INC.-2005-BP-10549AU

PATIENT
  Sex: Female

DRUGS (2)
  1. SPIRIVA [Suspect]
     Route: 055
  2. COMBIVENT [Concomitant]
     Route: 055

REACTIONS (1)
  - RESPIRATORY FAILURE [None]
